FAERS Safety Report 17682886 (Version 1)
Quarter: 2020Q2

REPORT INFORMATION
  Report Type: Spontaneous
  Country: US (occurrence: US)
  Receive Date: 20200420
  Receipt Date: 20200420
  Transmission Date: 20200714
  Serious: Yes (Hospitalization)
  Sender: FDA-Public Use
  Company Number: US-JNJFOC-20200415768

PATIENT
  Age: 52 Year
  Sex: Male
  Weight: 77.1 kg

DRUGS (8)
  1. TREPROSTINIL SODIUM [Suspect]
     Active Substance: TREPROSTINIL SODIUM
     Route: 042
  2. IMODIUM [Suspect]
     Active Substance: LOPERAMIDE HYDROCHLORIDE
     Indication: PRODUCT USED FOR UNKNOWN INDICATION
     Route: 065
  3. TREPROSTINIL SODIUM [Suspect]
     Active Substance: TREPROSTINIL SODIUM
     Indication: PULMONARY ARTERIAL HYPERTENSION
     Route: 042
     Dates: start: 20151230
  4. TORSEMIDE. [Suspect]
     Active Substance: TORSEMIDE
     Indication: PRODUCT USED FOR UNKNOWN INDICATION
     Route: 065
  5. ADCIRCA [Concomitant]
     Active Substance: TADALAFIL
  6. TREPROSTINIL SODIUM [Suspect]
     Active Substance: TREPROSTINIL SODIUM
     Route: 042
  7. OPSUMIT [Concomitant]
     Active Substance: MACITENTAN
  8. TREPROSTINIL SODIUM [Suspect]
     Active Substance: TREPROSTINIL SODIUM
     Route: 042
     Dates: start: 20200223

REACTIONS (4)
  - Somnolence [Unknown]
  - Diarrhoea [Not Recovered/Not Resolved]
  - Abdominal distension [Unknown]
  - Nausea [Unknown]

NARRATIVE: CASE EVENT DATE: 202002
